FAERS Safety Report 5745244-1 (Version None)
Quarter: 2008Q2

REPORT INFORMATION
  Report Type: 
  Country: None (occurrence: None)
  Receive Date: 20080521
  Receipt Date: 20080514
  Transmission Date: 20081010
  Serious: Yes (Other)
  Sender: FDA-Public Use
  Company Number: B0521204A

PATIENT
  Age: 24 Year
  Sex: Female

DRUGS (1)
  1. BACTROBAN MUPIROCIN OINTMENT [Suspect]
     Route: 061
     Dates: start: 20080510, end: 20080510

REACTIONS (7)
  - CONVERSION DISORDER [None]
  - CONVULSIONS LOCAL [None]
  - ENCEPHALITIS [None]
  - HYPERHIDROSIS [None]
  - RASH PRURITIC [None]
  - TETANY [None]
  - UPPER RESPIRATORY TRACT INFECTION [None]
